FAERS Safety Report 9195923 (Version 1)
Quarter: 2013Q1

REPORT INFORMATION
  Report Type: Spontaneous
  Country: US (occurrence: None)
  Receive Date: 20120703
  Receipt Date: 20120703
  Transmission Date: 20140127
  Serious: No
  Sender: FDA-Public Use
  Company Number: PHEH2012US007993

PATIENT
  Age: 63 Year
  Sex: Female
  Weight: 119.3 kg

DRUGS (1)
  1. GILENYA [Suspect]
     Indication: RELAPSING-REMITTING MULTIPLE SCLEROSIS
     Route: 048
     Dates: start: 20120330, end: 20120409

REACTIONS (5)
  - Nausea [None]
  - Vomiting [None]
  - Dizziness [None]
  - Asthenia [None]
  - Diarrhoea [None]
